FAERS Safety Report 17563056 (Version 7)
Quarter: 2020Q2

REPORT INFORMATION
  Report Type: Spontaneous
  Country: US (occurrence: US)
  Receive Date: 20200319
  Receipt Date: 20200508
  Transmission Date: 20200713
  Serious: Yes (Hospitalization, Other)
  Sender: FDA-Public Use
  Company Number: US-PFIZER INC-2020118780

PATIENT
  Age: 75 Year
  Sex: Female
  Weight: 99.34 kg

DRUGS (4)
  1. PREMARIN [Suspect]
     Active Substance: ESTROGENS, CONJUGATED
     Indication: BURNING SENSATION
     Dosage: UNK, ALTERNATE DAY (APPLIES CREAM EVERY OTHER DAY)
     Route: 067
  2. PREMARIN [Suspect]
     Active Substance: ESTROGENS, CONJUGATED
     Indication: ATROPHIC VULVOVAGINITIS
  3. PREMARIN [Suspect]
     Active Substance: ESTROGENS, CONJUGATED
     Indication: GENITAL BURNING SENSATION
     Dosage: 1 MG, ALTERNATE DAY(EVERY OTHER DAY)
     Route: 067
  4. PREMARIN [Suspect]
     Active Substance: ESTROGENS, CONJUGATED
     Indication: ALOPECIA

REACTIONS (22)
  - Thyroid disorder [Unknown]
  - Hot flush [Unknown]
  - Emotional disorder [Unknown]
  - Crying [Unknown]
  - Atrophic vulvovaginitis [Unknown]
  - Fibromyalgia [Unknown]
  - Hypothalamo-pituitary disorder [Unknown]
  - Inappropriate schedule of product administration [Unknown]
  - Vulvovaginal dryness [Unknown]
  - Depressed mood [Unknown]
  - Headache [Unknown]
  - Insomnia [Unknown]
  - Malaise [Unknown]
  - Vulvovaginal pain [Unknown]
  - Fluid retention [Unknown]
  - Bladder prolapse [Unknown]
  - Palpitations [Unknown]
  - Urinary tract infection [Recovered/Resolved]
  - Klebsiella infection [Recovering/Resolving]
  - Red blood cell sedimentation rate increased [Unknown]
  - Asthenia [Unknown]
  - Hyperhidrosis [Unknown]
